FAERS Safety Report 12160538 (Version 1)
Quarter: 2016Q1

REPORT INFORMATION
  Report Type: Report from Study
  Country: CO (occurrence: CO)
  Receive Date: 20160308
  Receipt Date: 20160308
  Transmission Date: 20160526
  Serious: Yes (Other)
  Sender: FDA-Public Use
  Company Number: CO-JNJFOC-20160306875

PATIENT
  Age: 49 Year
  Sex: Female
  Weight: 73 kg

DRUGS (1)
  1. REMICADE [Suspect]
     Active Substance: INFLIXIMAB
     Indication: ANKYLOSING SPONDYLITIS
     Route: 042
     Dates: start: 20100110, end: 20151209

REACTIONS (3)
  - Off label use [Unknown]
  - Inappropriate schedule of drug administration [Unknown]
  - Shoulder operation [Not Recovered/Not Resolved]

NARRATIVE: CASE EVENT DATE: 20100110
